FAERS Safety Report 6999466-2 (Version None)
Quarter: 2010Q3

REPORT INFORMATION
  Report Type: 
  Country: None (occurrence: None)
  Receive Date: 20100920
  Receipt Date: 20080201
  Transmission Date: 20110219
  Serious: Yes (Hospitalization)
  Sender: FDA-Public Use
  Company Number: US-ASTRAZENECA-2007UW04796

PATIENT
  Age: 5444 Day
  Sex: Male
  Weight: 43.9 kg

DRUGS (21)
  1. SEROQUEL [Suspect]
     Indication: DEPRESSION
     Dosage: 25 MG-100 MG
     Route: 048
     Dates: start: 20031223, end: 20060525
  2. SEROQUEL [Suspect]
     Indication: IRRITABILITY
     Dosage: 25 MG-100 MG
     Route: 048
     Dates: start: 20031223, end: 20060525
  3. SEROQUEL [Suspect]
     Indication: SLEEP DISORDER
     Dosage: 25 MG-100 MG
     Route: 048
     Dates: start: 20031223, end: 20060525
  4. SEROQUEL [Suspect]
     Indication: AGGRESSION
     Dosage: 25 MG-100 MG
     Route: 048
     Dates: start: 20031223, end: 20060525
  5. SEROQUEL [Suspect]
     Indication: STRESS
     Dosage: 25 MG-100 MG
     Route: 048
     Dates: start: 20031223, end: 20060525
  6. SEROQUEL [Suspect]
     Route: 048
     Dates: start: 20070214
  7. SEROQUEL [Suspect]
     Route: 048
     Dates: start: 20070214
  8. SEROQUEL [Suspect]
     Route: 048
     Dates: start: 20070214
  9. SEROQUEL [Suspect]
     Route: 048
     Dates: start: 20070214
  10. SEROQUEL [Suspect]
     Route: 048
     Dates: start: 20070214
  11. DEPAKOTE [Suspect]
     Indication: ATTENTION DEFICIT/HYPERACTIVITY DISORDER
     Dosage: 250 MG-750 MG
     Route: 048
     Dates: start: 20060101
  12. DEPAKOTE [Suspect]
     Indication: DEPRESSION
     Dosage: 250 MG-750 MG
     Route: 048
     Dates: start: 20060101
  13. CONCERTA [Concomitant]
     Indication: ATTENTION DEFICIT/HYPERACTIVITY DISORDER
     Dosage: 10 MG - 72 MG
     Route: 048
     Dates: start: 20031121
  14. CONCERTA [Concomitant]
     Indication: DEPRESSION
     Dosage: 10 MG - 72 MG
     Route: 048
     Dates: start: 20031121
  15. PRILOSEC [Concomitant]
     Indication: GASTROOESOPHAGEAL REFLUX DISEASE
     Dates: start: 20060524
  16. SINGULAIR [Concomitant]
     Indication: SEASONAL ALLERGY
     Dosage: 25 MG TWICE A NIGHT
     Dates: start: 20060101
  17. REMERON [Concomitant]
     Dosage: 15 MG - 20 MG
     Route: 048
     Dates: start: 20060101
  18. INSULIN [Concomitant]
     Route: 058
     Dates: start: 20060524
  19. PREVACID [Concomitant]
     Route: 048
     Dates: start: 20060101
  20. LANTUS [Concomitant]
     Dosage: 14 UNITS AT NIGHT
     Dates: start: 20060524
  21. NOVOLOG [Concomitant]
     Dosage: NOVOLOG 10 - 15 GRAMS EVERY MEAL
     Dates: start: 20060524

REACTIONS (4)
  - DIABETES MELLITUS INADEQUATE CONTROL [None]
  - DIABETIC KETOACIDOSIS [None]
  - TYPE 1 DIABETES MELLITUS [None]
  - TYPE 2 DIABETES MELLITUS [None]
